FAERS Safety Report 19034263 (Version 2)
Quarter: 2021Q2

REPORT INFORMATION
  Report Type: Spontaneous
  Country: GB (occurrence: GB)
  Receive Date: 20210319
  Receipt Date: 20210513
  Transmission Date: 20210717
  Serious: Yes (Other)
  Sender: FDA-Public Use
  Company Number: NVSC2021GB062188

PATIENT
  Age: 8 Year
  Sex: Female

DRUGS (5)
  1. OXCARBAZEPINE. [Suspect]
     Active Substance: OXCARBAZEPINE
     Dosage: 1050 MG (7 TABLETS) (450MG IN THE MORNING AND 600MG IN THE EVENING)
     Route: 048
     Dates: start: 201912
  2. TRILEPTAL [Suspect]
     Active Substance: OXCARBAZEPINE
     Dosage: 300 MG, UNKNOWN
     Route: 065
     Dates: start: 201907
  3. OXCARBAZEPINE. [Suspect]
     Active Substance: OXCARBAZEPINE
     Indication: PARTIAL SEIZURES
     Dosage: UNK
     Route: 048
     Dates: start: 201908
  4. LAMICTAL [Concomitant]
     Active Substance: LAMOTRIGINE
     Indication: PRODUCT USED FOR UNKNOWN INDICATION
     Dosage: 250 MG, QD (10 TABLETS A DAY)
     Route: 065
     Dates: start: 201706
  5. TRILEPTAL [Suspect]
     Active Substance: OXCARBAZEPINE
     Indication: PRODUCT USED FOR UNKNOWN INDICATION
     Dosage: UNK
     Route: 065
     Dates: start: 201904, end: 201907

REACTIONS (5)
  - Product availability issue [Unknown]
  - Seizure [Unknown]
  - Drug ineffective [Unknown]
  - Liquid product physical issue [Unknown]
  - Incorrect dose administered [Unknown]
